FAERS Safety Report 6424555-0 (Version None)
Quarter: 2009Q4

REPORT INFORMATION
  Report Type: 
  Country: None (occurrence: None)
  Receive Date: 20091103
  Receipt Date: 20091102
  Transmission Date: 20100525
  Serious: Yes (Hospitalization)
  Sender: FDA-Public Use
  Company Number: US-ROXANE LABORATORIES, INC.-2009-RO-01115RO

PATIENT
  Age: 72 Year
  Sex: Male
  Weight: 119 kg

DRUGS (5)
  1. PREDNISONE [Suspect]
  2. ZOMETA [Suspect]
     Indication: METASTASES TO BONE
     Route: 042
     Dates: start: 20090506
  3. VITAMIN D [Concomitant]
  4. CALCIUM [Concomitant]
  5. TAXOTERE [Concomitant]

REACTIONS (1)
  - CELLULITIS [None]
